FAERS Safety Report 22294938 (Version 1)
Quarter: 2023Q2

REPORT INFORMATION
  Report Type: Spontaneous
  Country: AT (occurrence: AT)
  Receive Date: 20230508
  Receipt Date: 20230508
  Transmission Date: 20230721
  Serious: Yes (Hospitalization, Other)
  Sender: FDA-Public Use
  Company Number: AT-AMGEN-AUTSP2023074461

PATIENT
  Age: 48 Year
  Sex: Male

DRUGS (8)
  1. NPLATE [Suspect]
     Active Substance: ROMIPLOSTIM
     Indication: Immune thrombocytopenia
     Dosage: 250 MICROGRAM
     Route: 058
     Dates: start: 201509
  2. NPLATE [Suspect]
     Active Substance: ROMIPLOSTIM
     Dosage: 500 MICROGRAM
     Route: 058
  3. NPLATE [Suspect]
     Active Substance: ROMIPLOSTIM
     Dosage: 750 MICROGRAM, QD
     Route: 058
     Dates: start: 201809
  4. DEXAMETHASONE [Concomitant]
     Active Substance: DEXAMETHASONE
  5. METHYLPREDNISOLONE [Concomitant]
     Active Substance: METHYLPREDNISOLONE
  6. RITUXIMAB [Concomitant]
     Active Substance: RITUXIMAB
  7. METHYLPREDNISOLONE [Concomitant]
     Active Substance: METHYLPREDNISOLONE
  8. ELTROMBOPAG [Concomitant]
     Active Substance: ELTROMBOPAG

REACTIONS (7)
  - Basilar artery aneurysm [Unknown]
  - Clear cell renal cell carcinoma [Unknown]
  - Post procedural pulmonary embolism [Unknown]
  - Therapeutic product effect decreased [Unknown]
  - Cholelithiasis [Unknown]
  - Haemangioma [Unknown]
  - Off label use [Unknown]

NARRATIVE: CASE EVENT DATE: 20150901
